FAERS Safety Report 10956429 (Version 1)
Quarter: 2015Q1

REPORT INFORMATION
  Report Type: Spontaneous
  Country: US (occurrence: US)
  Receive Date: 20150326
  Receipt Date: 20150326
  Transmission Date: 20150721
  Serious: No
  Sender: FDA-Public Use
  Company Number: US-BAYER-2015-072147

PATIENT
  Age: 54 Year
  Sex: Female

DRUGS (1)
  1. MAGNEVIST [Suspect]
     Active Substance: GADOPENTETATE DIMEGLUMINE
     Indication: NUCLEAR MAGNETIC RESONANCE IMAGING BREAST
     Dosage: 50 ML, ONCE
     Dates: start: 20150325, end: 20150325

REACTIONS (1)
  - Headache [None]

NARRATIVE: CASE EVENT DATE: 20150325
